FAERS Safety Report 23981899 (Version 1)
Quarter: 2024Q2

REPORT INFORMATION
  Report Type: Other
  Country: US (occurrence: US)
  Receive Date: 20240617
  Receipt Date: 20240617
  Transmission Date: 20240715
  Serious: Yes (Hospitalization, Other)
  Sender: FDA-Public Use
  Company Number: US-Omnivium Pharmaceuticals LLC-2158209

PATIENT
  Age: 28 Year
  Sex: Male

DRUGS (1)
  1. SODIUM BICARBONATE [Suspect]
     Active Substance: SODIUM BICARBONATE
     Indication: Product used for unknown indication
     Route: 048

REACTIONS (9)
  - Seizure [Recovered/Resolved]
  - Intentional product misuse [Unknown]
  - Intentional overdose [Unknown]
  - Metabolic alkalosis [Unknown]
  - Hypernatraemia [Recovering/Resolving]
  - Tachycardia [Unknown]
  - Abdominal pain [Unknown]
  - Blood bicarbonate increased [Recovering/Resolving]
  - Blood lactic acid increased [Unknown]
